FAERS Safety Report 4914881-6 (Version None)
Quarter: 2006Q1

REPORT INFORMATION
  Report Type: 
  Country: None (occurrence: None)
  Receive Date: 20060217
  Receipt Date: 20060203
  Transmission Date: 20060701
  Serious: Yes (Other)
  Sender: FDA-Public Use
  Company Number: FR-JNJFOC-20060100670

PATIENT
  Age: 50 Year
  Sex: Male

DRUGS (13)
  1. TRAMADOL HCL [Suspect]
     Indication: INTERVERTEBRAL DISC PROTRUSION
     Route: 048
     Dates: start: 20051121, end: 20051212
  2. TRAMADOL HCL [Suspect]
     Indication: BACK PAIN
     Route: 048
     Dates: start: 20051121, end: 20051212
  3. DEPAKOTE [Concomitant]
     Indication: BIPOLAR DISORDER
     Route: 048
  4. SULFARLEM [Concomitant]
     Route: 048
  5. THERALENE [Concomitant]
     Route: 048
  6. TEMESTA [Concomitant]
     Route: 048
  7. MIOREL [Concomitant]
     Indication: INTERVERTEBRAL DISC PROTRUSION
     Route: 048
  8. TOPLEXIL [Concomitant]
     Route: 048
  9. TOPLEXIL [Concomitant]
     Route: 048
  10. TOPLEXIL [Concomitant]
     Route: 048
  11. TOPLEXIL [Concomitant]
     Route: 048
  12. DI-ANTALVIC [Concomitant]
     Route: 048
  13. DI-ANTALVIC [Concomitant]
     Route: 048

REACTIONS (1)
  - MANIA [None]
